FAERS Safety Report 5792357-4 (Version None)
Quarter: 2008Q2

REPORT INFORMATION
  Report Type: 
  Country: None (occurrence: None)
  Receive Date: 20080626
  Receipt Date: 20080307
  Transmission Date: 20081010
  Serious: No
  Sender: FDA-Public Use
  Company Number: US-ASTRAZENECA-2008UW04570

PATIENT
  Age: 11 Month
  Sex: Female

DRUGS (2)
  1. PULMICORT RESPULES [Suspect]
     Indication: WHEEZING
     Route: 055
  2. ALBUTEROL [Concomitant]

REACTIONS (3)
  - CANDIDIASIS [None]
  - RESPIRATORY RATE INCREASED [None]
  - TACHYCARDIA [None]
